FAERS Safety Report 7819113-7 (Version None)
Quarter: 2011Q4

REPORT INFORMATION
  Report Type: 
  Country: None (occurrence: None)
  Receive Date: 20111018
  Receipt Date: 20111004
  Transmission Date: 20120403
  Serious: Yes (Death, Hospitalization, Other)
  Sender: FDA-Public Use
  Company Number: CZ-CELGENEUS-217-21880-11071307

PATIENT
  Age: 78 Year
  Sex: Female
  Weight: 64 kg

DRUGS (19)
  1. DEXAMETHASONE [Suspect]
     Dosage: 4 MILLIGRAM
     Route: 048
     Dates: start: 20110627, end: 20110710
  2. AUGMENTIN '125' [Concomitant]
     Route: 048
     Dates: start: 20110530, end: 20110612
  3. VITAMIN AD [Concomitant]
     Indication: OSTEOPOROSIS
     Dosage: 1 GUTTA
     Route: 048
     Dates: start: 20051001
  4. REVLIMID [Suspect]
     Indication: MYELOMA RECURRENCE
     Dosage: 25 MILLIGRAM
     Route: 048
     Dates: start: 20110418, end: 20110508
  5. CEFUROXIME [Concomitant]
     Indication: INFECTION
     Dosage: 1000 MILLIGRAM
     Route: 048
     Dates: start: 20110623, end: 20110627
  6. REVLIMID [Suspect]
     Dosage: 15 MILLIGRAM
     Route: 048
     Dates: start: 20110627, end: 20110710
  7. TIMOLOL MALEATE [Concomitant]
     Indication: GLAUCOMA
     Dosage: 1 DROPS
     Route: 047
  8. IBANDRONATE SODIUM [Concomitant]
     Dosage: 50 MILLIGRAM
     Dates: start: 20091001
  9. CIPROFLOXACIN [Concomitant]
     Dosage: 500 MILLIGRAM
     Route: 048
     Dates: start: 20110417
  10. LANSOPROL [Concomitant]
     Dosage: 15 MILLIGRAM
     Route: 065
     Dates: start: 20090617
  11. MICARDIS PLUS 80 [Concomitant]
     Indication: HYPERTENSION
     Route: 048
  12. XALATAN [Concomitant]
     Indication: GLAUCOMA
     Dosage: 1 DROPS
     Route: 047
  13. NUTRIDRINK [Concomitant]
     Route: 048
     Dates: start: 20110613
  14. PALLADONE SR [Concomitant]
     Route: 048
     Dates: start: 20101213
  15. NEURONTIN [Concomitant]
     Dosage: 300 MILLIGRAM
     Route: 048
     Dates: start: 20101004, end: 20110505
  16. DEXAMETHASONE [Suspect]
     Indication: MYELOMA RECURRENCE
     Dosage: 40 MILLIGRAM
     Route: 048
     Dates: start: 20110418, end: 20110606
  17. HERPESIN [Concomitant]
     Indication: ANTIVIRAL PROPHYLAXIS
     Dosage: 400 MILLIGRAM
     Route: 065
     Dates: start: 20110417
  18. ANOPYRIN [Concomitant]
     Indication: ANTICOAGULANT THERAPY
     Dosage: 100 MILLIGRAM
     Route: 048
     Dates: start: 20110417
  19. CALCIUM CARBONATE [Concomitant]
     Indication: OSTEOPOROSIS
     Route: 048
     Dates: start: 20051001

REACTIONS (8)
  - HYPOTENSION [None]
  - RENAL FAILURE [None]
  - METABOLIC ACIDOSIS [None]
  - GASTROINTESTINAL STROMAL TUMOUR [None]
  - CARDIAC FAILURE [None]
  - PULMONARY OEDEMA [None]
  - FEBRILE NEUTROPENIA [None]
  - PANCYTOPENIA [None]
